FAERS Safety Report 4575981-6 (Version None)
Quarter: 2005Q1

REPORT INFORMATION
  Report Type: 
  Country: None (occurrence: None)
  Receive Date: 20050209
  Receipt Date: 20050202
  Transmission Date: 20050727
  Serious: Yes (Hospitalization)
  Sender: FDA-Public Use
  Company Number: PHRM2005FR00698

PATIENT
  Age: 86 Year
  Sex: Female

DRUGS (2)
  1. DI-ANTALVIC [Concomitant]
     Route: 048
  2. BENAZEPRIL HCL [Suspect]
     Indication: HYPERTENSION
     Dosage: 1 DF, QD
     Route: 048
     Dates: end: 20050131

REACTIONS (1)
  - GENERALISED OEDEMA [None]
